FAERS Safety Report 10560168 (Version 3)
Quarter: 2015Q1

REPORT INFORMATION
  Report Type: Spontaneous
  Country: JP (occurrence: JP)
  Receive Date: 20141103
  Receipt Date: 20150205
  Transmission Date: 20150720
  Serious: Yes (Hospitalization)
  Sender: FDA-Public Use
  Company Number: PHHY2014JP141781

PATIENT
  Sex: Male

DRUGS (4)
  1. SANDIMMUNE [Concomitant]
     Active Substance: CYCLOSPORINE
     Indication: PRODUCT USED FOR UNKNOWN INDICATION
     Dosage: 40 MG, UNK
     Route: 023
     Dates: start: 20141025, end: 20141030
  2. NEORAL [Suspect]
     Active Substance: CYCLOSPORINE
     Indication: RENAL TRANSPLANT
     Dosage: 150 MG, QD
     Route: 048
     Dates: end: 20141024
  3. PREDONINE [Concomitant]
     Active Substance: PREDNISOLONE\PREDNISOLONE ACETATE\PREDNISOLONE SODIUM SUCCINATE
     Indication: PRODUCT USED FOR UNKNOWN INDICATION
     Dosage: 10 MG, UNK
     Route: 048
     Dates: end: 20141024
  4. NEORAL [Suspect]
     Active Substance: CYCLOSPORINE
     Dosage: 150 MG, QD
     Route: 048
     Dates: start: 20141031

REACTIONS (1)
  - Gastrointestinal perforation [Unknown]

NARRATIVE: CASE EVENT DATE: 20141024
